FAERS Safety Report 9018487 (Version 1)
Quarter: 2013Q1

REPORT INFORMATION
  Report Type: Spontaneous
  Country: US (occurrence: US)
  Receive Date: 20130118
  Receipt Date: 20130118
  Transmission Date: 20140127
  Serious: No
  Sender: FDA-Public Use
  Company Number: US-PFIZER INC-2013018508

PATIENT
  Sex: 0

DRUGS (3)
  1. VANCOMYCIN HCL [Suspect]
     Dosage: UNK
  2. IODINE [Suspect]
     Dosage: UNK
  3. SOMA [Suspect]
     Dosage: UNK

REACTIONS (1)
  - Drug hypersensitivity [Unknown]
